FAERS Safety Report 8453956-4 (Version None)
Quarter: 2012Q2

REPORT INFORMATION
  Report Type: 
  Country: None (occurrence: None)
  Receive Date: 20120620
  Receipt Date: 20120607
  Transmission Date: 20120825
  Serious: Yes (Hospitalization)
  Sender: FDA-Public Use
  Company Number: TR-MYLANLABS-2012S1011851

PATIENT
  Age: 59 Year
  Sex: Male

DRUGS (5)
  1. LEUCOVORIN CALCIUM [Concomitant]
     Indication: RECTAL CANCER
     Dosage: 200 MG/M2 WEEKLY VIA 2 HOUR IV INFUSION
     Route: 041
  2. OXALIPLATIN [Concomitant]
     Indication: RECTAL CANCER
     Dosage: 85 MG/M2 VIA 2 HOUR IV INFUSION ON DAY 1, 15 AND 29
     Route: 041
  3. PRAMIPEXOLE [Concomitant]
     Indication: PARKINSON'S DISEASE
     Dosage: 1 MG/DAY
     Route: 065
  4. STALEVO 100 [Concomitant]
     Indication: PARKINSON'S DISEASE
     Dosage: 3 TABLETS PER DAY
  5. FLUOROURACIL [Suspect]
     Indication: RECTAL CANCER
     Dosage: 500 MG/M2 WEEKLY VIA IV BOLUS INFUSION
     Route: 040

REACTIONS (5)
  - HYPERAMMONAEMIA [None]
  - NAUSEA [None]
  - DIARRHOEA [None]
  - TOXIC ENCEPHALOPATHY [None]
  - VOMITING [None]
